FAERS Safety Report 15272225 (Version 1)
Quarter: 2018Q3

REPORT INFORMATION
  Report Type: Spontaneous
  Country: US (occurrence: US)
  Receive Date: 20180727
  Receipt Date: 20180727
  Transmission Date: 20181010
  Serious: Yes (Hospitalization)
  Sender: FDA-Public Use
  Company Number: None

PATIENT
  Age: 48 Year
  Sex: Female

DRUGS (16)
  1. DICLOFENAC [Concomitant]
     Active Substance: DICLOFENAC
  2. PROCHLORPER [Concomitant]
  3. ALPRAZOLAM. [Concomitant]
     Active Substance: ALPRAZOLAM
  4. SMZ?TMP [Concomitant]
     Active Substance: SULFAMETHOXAZOLE\TRIMETHOPRIM
  5. VITAMIN D [Concomitant]
     Active Substance: CHOLECALCIFEROL
  6. METHYLPRED [Concomitant]
     Active Substance: METHYLPREDNISOLONE
  7. ENBREL [Suspect]
     Active Substance: ETANERCEPT
     Indication: RHEUMATOID ARTHRITIS
     Route: 058
     Dates: start: 20180606
  8. VITAMIN D [Concomitant]
     Active Substance: CHOLECALCIFEROL
  9. ONDANSETRON [Concomitant]
     Active Substance: ONDANSETRON
  10. DULOXETINE. [Concomitant]
     Active Substance: DULOXETINE
  11. TIZANIDINE. [Concomitant]
     Active Substance: TIZANIDINE
  12. HYDROCO/APAP [Concomitant]
     Active Substance: ACETAMINOPHEN\HYDROCODONE
  13. CIPROFLOXACIN. [Concomitant]
     Active Substance: CIPROFLOXACIN
  14. NEUPROXIN [Concomitant]
  15. FLUCONAZOLE. [Concomitant]
     Active Substance: FLUCONAZOLE
  16. PREDNISONE. [Concomitant]
     Active Substance: PREDNISONE

REACTIONS (6)
  - Pain in extremity [None]
  - Arthralgia [None]
  - Drug ineffective [None]
  - Musculoskeletal pain [None]
  - Spinal pain [None]
  - Depression [None]

NARRATIVE: CASE EVENT DATE: 201806
